FAERS Safety Report 15211015 (Version 4)
Quarter: 2018Q3

REPORT INFORMATION
  Report Type: Spontaneous
  Country: US (occurrence: US)
  Receive Date: 20180728
  Receipt Date: 20180928
  Transmission Date: 20181010
  Serious: No
  Sender: FDA-Public Use
  Company Number: US-JNJFOC-20180719785

PATIENT
  Sex: Male

DRUGS (1)
  1. RISPERDAL CONSTA [Suspect]
     Active Substance: RISPERIDONE
     Indication: SCHIZOPHRENIA
     Route: 030
     Dates: start: 20161117

REACTIONS (5)
  - Product storage error [Unknown]
  - Drug dose omission [Unknown]
  - Product colour issue [Unknown]
  - Product reconstitution quality issue [Unknown]
  - Product label issue [Unknown]
